FAERS Safety Report 7131899-6 (Version None)
Quarter: 2010Q4

REPORT INFORMATION
  Report Type: 
  Country: None (occurrence: None)
  Receive Date: 20101202
  Receipt Date: 20101118
  Transmission Date: 20110411
  Serious: Yes (Hospitalization)
  Sender: FDA-Public Use
  Company Number: TR-RANBAXY-2010RR-39586

PATIENT
  Age: 24 Year
  Sex: Female

DRUGS (6)
  1. SERTRALINE HYDROCHLORIDE [Suspect]
     Dosage: 50 MG, QD
  2. SERTRALINE HYDROCHLORIDE [Suspect]
     Dosage: 75 MG, QD
  3. ALPRAZOLAM [Concomitant]
     Dosage: 0.5 MG, QD
  4. ALPRAZOLAM [Concomitant]
     Dosage: UNK MG, QD
  5. ALPRAZOLAM [Concomitant]
     Dosage: 0.75 MG, QD
  6. MIRTAZAPINE [Concomitant]
     Dosage: 15 MG, QD

REACTIONS (1)
  - PUPILS UNEQUAL [None]
